FAERS Safety Report 7108781-3 (Version None)
Quarter: 2010Q4

REPORT INFORMATION
  Report Type: 
  Country: None (occurrence: None)
  Receive Date: 20101117
  Receipt Date: 20091002
  Transmission Date: 20110411
  Serious: Yes (Other)
  Sender: FDA-Public Use
  Company Number: FR-ACTELION-A-CH2008-23188

PATIENT
  Sex: Female

DRUGS (11)
  1. TRACLEER [Suspect]
     Indication: SKIN ULCER
     Dosage: 125 MG, BID
     Route: 048
     Dates: start: 20080625
  2. TRACLEER [Suspect]
     Dosage: 62.5 MG, BID
     Route: 048
  3. TRACLEER [Suspect]
     Dosage: 62.5 MG, BID
     Route: 048
     Dates: start: 20080601, end: 20080624
  4. TRACLEER [Suspect]
     Dosage: 125 MG, BID
     Route: 048
  5. DILTIAZEM HCL [Suspect]
  6. IMODIUM [Suspect]
  7. ILOMEDINE [Concomitant]
  8. LEVOTHYROXINE SODIUM [Concomitant]
  9. OGAST [Concomitant]
  10. KARDEGIC [Concomitant]
  11. SPASFON [Concomitant]

REACTIONS (6)
  - ALANINE AMINOTRANSFERASE INCREASED [None]
  - ASPARTATE AMINOTRANSFERASE INCREASED [None]
  - CHOLECYSTECTOMY [None]
  - CHOLELITHIASIS [None]
  - GAMMA-GLUTAMYLTRANSFERASE INCREASED [None]
  - LIVER FUNCTION TEST ABNORMAL [None]
